FAERS Safety Report 15065621 (Version 1)
Quarter: 2018Q2

REPORT INFORMATION
  Report Type: Spontaneous
  Country: CH (occurrence: CH)
  Receive Date: 20180626
  Receipt Date: 20180626
  Transmission Date: 20180711
  Serious: Yes (Other)
  Sender: FDA-Public Use
  Company Number: CH-ROCHE-2143687

PATIENT
  Sex: Female

DRUGS (7)
  1. ARA-C [Concomitant]
     Active Substance: CYTARABINE
     Route: 065
     Dates: start: 2018, end: 2018
  2. BENDAMUSTINA [Concomitant]
     Active Substance: BENDAMUSTINE
     Route: 065
     Dates: start: 2018, end: 2018
  3. HYDROXYDAUNORUBICIN [Concomitant]
     Active Substance: DOXORUBICIN
     Route: 065
     Dates: start: 2008
  4. PREDNISON [Concomitant]
     Active Substance: PREDNISONE
     Route: 065
     Dates: start: 2008
  5. MABTHERA [Suspect]
     Active Substance: RITUXIMAB
     Indication: MANTLE CELL LYMPHOMA
     Route: 065
     Dates: start: 2008, end: 2018
  6. ONCOVIN [Concomitant]
     Active Substance: VINCRISTINE SULFATE
     Route: 065
     Dates: start: 2008
  7. CYCLOPHOSPHAMID [Concomitant]
     Active Substance: CYCLOPHOSPHAMIDE
     Route: 065
     Dates: start: 2008

REACTIONS (1)
  - Lymphoma [Unknown]
